FAERS Safety Report 6517097-5 (Version None)
Quarter: 2009Q4

REPORT INFORMATION
  Report Type: 
  Country: None (occurrence: None)
  Receive Date: 20091223
  Receipt Date: 20091214
  Transmission Date: 20100525
  Serious: Yes (Hospitalization)
  Sender: FDA-Public Use
  Company Number: B0610095A

PATIENT
  Sex: Male

DRUGS (3)
  1. MALARONE [Suspect]
     Indication: MALARIA PROPHYLAXIS
     Dosage: 1TAB PER DAY
     Route: 048
     Dates: start: 20081001, end: 20081001
  2. VENTOLIN [Concomitant]
  3. NEBULISER (UNKNOWN MEDICATIONS) [Concomitant]

REACTIONS (2)
  - ASTHMA [None]
  - RESPIRATORY ARREST [None]
